FAERS Safety Report 13989098 (Version 1)
Quarter: 2017Q3

REPORT INFORMATION
  Report Type: Spontaneous
  Country: US (occurrence: None)
  Receive Date: 20170919
  Receipt Date: 20170919
  Transmission Date: 20171128
  Serious: Yes (Hospitalization)
  Sender: FDA-Public Use
  Company Number: None

PATIENT
  Age: 62 Year
  Sex: Female

DRUGS (3)
  1. REVLIMID [Suspect]
     Active Substance: LENALIDOMIDE
     Indication: PLASMA CELL MYELOMA
     Dosage: FREQUENCY - 1 CAPSULE ON MWF
     Route: 048
     Dates: start: 20160824
  2. NINLARO [Suspect]
     Active Substance: IXAZOMIB
     Indication: PLASMA CELL MYELOMA
     Route: 048
     Dates: start: 20161231
  3. FENTANYL. [Concomitant]
     Active Substance: FENTANYL

REACTIONS (3)
  - Diarrhoea [None]
  - Fatigue [None]
  - Drug dose omission [None]

NARRATIVE: CASE EVENT DATE: 20170915
